FAERS Safety Report 4816894-1 (Version None)
Quarter: 2005Q4

REPORT INFORMATION
  Report Type: 
  Country: None (occurrence: None)
  Receive Date: 20051031
  Receipt Date: 20051031
  Transmission Date: 20060501
  Serious: Yes (Life-Threatening, Hospitalization, Disabling)
  Sender: FDA-Public Use
  Company Number: None

PATIENT
  Age: 62 Year
  Sex: Male
  Weight: 76 kg

DRUGS (7)
  1. IBUPROFEN [Suspect]
     Indication: PAIN
     Dosage: 6-800 MG QID PRN PO
     Route: 048
     Dates: start: 20050919, end: 20050907
  2. COUMADIN [Suspect]
     Indication: DEEP VEIN THROMBOSIS
     Dosage: 27MG/WEEK PO
     Route: 048
     Dates: start: 20040101, end: 20050907
  3. OMEPRAZOLE [Concomitant]
  4. ZOLEDRONIC ACID [Concomitant]
  5. METOPROLOL TARTRATE [Concomitant]
  6. PREDNISONE [Concomitant]
  7. METHYLPHENIDATE HCL [Concomitant]

REACTIONS (1)
  - SUBDURAL HAEMATOMA [None]
